FAERS Safety Report 6859822-X (Version None)
Quarter: 2010Q3

REPORT INFORMATION
  Report Type: 
  Country: None (occurrence: None)
  Receive Date: 20100720
  Receipt Date: 20100714
  Transmission Date: 20110219
  Serious: Yes (Death, Hospitalization)
  Sender: FDA-Public Use
  Company Number: GB-BAYER-201013020GPV

PATIENT
  Age: 63 Year
  Sex: Male
  Weight: 85 kg

DRUGS (12)
  1. SORAFENIB [Suspect]
     Indication: RENAL CELL CARCINOMA
     Dosage: TOTAL DAILY DOSE: 800 MG
     Dates: start: 20091118, end: 20100115
  2. BISOPROLOL [Concomitant]
     Indication: HYPERTENSION
     Route: 048
     Dates: start: 20091006, end: 20100127
  3. FELODIPINE [Concomitant]
     Indication: HYPERTENSION
     Dates: start: 20091006, end: 20100119
  4. PARACETAMOL [Concomitant]
  5. CEFTRIAXONE [Concomitant]
     Route: 042
  6. LANSOPRAZOLE [Concomitant]
     Indication: DYSPEPSIA
  7. ACETYLCYSTEINE [Concomitant]
     Dates: start: 20100121
  8. ANTIBIOTICS [Concomitant]
     Dates: start: 20100121
  9. VITAMIN K TAB [Concomitant]
     Dates: start: 20100124
  10. LACTULOSE [Concomitant]
     Dates: start: 20100124
  11. FLUCONAZOLE [Concomitant]
     Dosage: SINGLE DOSE
     Dates: start: 20100124
  12. RENAL REPLACEMENT THERAPY [Concomitant]
     Indication: BLOOD LACTIC ACID INCREASED
     Dates: start: 20100124

REACTIONS (4)
  - HEPATIC ENCEPHALOPATHY [None]
  - HEPATIC FAILURE [None]
  - JAUNDICE [None]
  - RENAL FAILURE [None]
